FAERS Safety Report 8994396 (Version 1)
Quarter: 2012Q4

REPORT INFORMATION
  Report Type: Spontaneous
  Country: US (occurrence: None)
  Receive Date: 20121227
  Receipt Date: 20121227
  Transmission Date: 20130627
  Serious: No
  Sender: FDA-Public Use
  Company Number: None

PATIENT
  Sex: Male
  Weight: 97.4 kg

DRUGS (1)
  1. ISOVUE-370 [Suspect]
     Dosage: 70 ml once Intra-arterial
     Route: 013
     Dates: start: 20121120, end: 20121120

REACTIONS (3)
  - Urticaria [None]
  - Hypotension [None]
  - Oxygen saturation decreased [None]
